FAERS Safety Report 10445908 (Version 2)
Quarter: 2015Q1

REPORT INFORMATION
  Report Type: Spontaneous
  Country: US (occurrence: US)
  Receive Date: 20140910
  Receipt Date: 20150123
  Transmission Date: 20150720
  Serious: Yes (Hospitalization, Other)
  Sender: FDA-Public Use
  Company Number: US-MERCK-1409USA004500

PATIENT
  Sex: Female
  Weight: 136.5 kg

DRUGS (2)
  1. BYETTA [Suspect]
     Active Substance: EXENATIDE
     Indication: TYPE 2 DIABETES MELLITUS
     Dosage: 10 MCG/0.4 ML, QD
     Route: 058
     Dates: start: 20081027, end: 20120601
  2. JANUVIA [Suspect]
     Active Substance: SITAGLIPTIN PHOSPHATE
     Indication: TYPE 2 DIABETES MELLITUS
     Dosage: 100 MG, QD
     Route: 048
     Dates: start: 20090115, end: 20121005

REACTIONS (22)
  - Salivary gland cancer [Recovering/Resolving]
  - Thyroidectomy [Unknown]
  - Parotidectomy [Unknown]
  - Squamous cell carcinoma of head and neck [Unknown]
  - Radiotherapy [Unknown]
  - Transient ischaemic attack [Unknown]
  - Metastasis [Unknown]
  - Procedural complication [Unknown]
  - Ovarian cyst [Unknown]
  - Papillary thyroid cancer [Unknown]
  - Radical neck dissection [Unknown]
  - Asthma [Unknown]
  - Osteoarthritis [Unknown]
  - VIIth nerve injury [Unknown]
  - Atrial fibrillation [Unknown]
  - Cholecystectomy [Unknown]
  - Facial paresis [Unknown]
  - Fibromyalgia [Unknown]
  - Thyroid neoplasm [Unknown]
  - Adverse reaction [Unknown]
  - Hepatic cirrhosis [Unknown]
  - Dyslipidaemia [Unknown]

NARRATIVE: CASE EVENT DATE: 2013
